FAERS Safety Report 11704196 (Version 4)
Quarter: 2016Q1

REPORT INFORMATION
  Report Type: Report from Study
  Country: US (occurrence: US)
  Receive Date: 20151106
  Receipt Date: 20160219
  Transmission Date: 20160525
  Serious: Yes (Hospitalization, Other)
  Sender: FDA-Public Use
  Company Number: US-AMGEN-USASP2015116141

PATIENT
  Age: 52 Year
  Sex: Female

DRUGS (1)
  1. ENBREL [Suspect]
     Active Substance: ETANERCEPT
     Indication: RHEUMATOID ARTHRITIS
     Dosage: 50 MG, QWK
     Route: 065
     Dates: start: 1999

REACTIONS (24)
  - Dyspnoea [Unknown]
  - Chest discomfort [Unknown]
  - Burning sensation [Unknown]
  - Dyspepsia [Unknown]
  - Back pain [Unknown]
  - Nasopharyngitis [Unknown]
  - Pain [Unknown]
  - Malaise [Unknown]
  - Cardiac operation [Unknown]
  - Fear [Unknown]
  - Tooth fracture [Unknown]
  - Cardiac disorder [Unknown]
  - Hip arthroplasty [Unknown]
  - Blood pressure increased [Recovered/Resolved]
  - Headache [Unknown]
  - Injection site pain [Unknown]
  - Angina pectoris [Unknown]
  - Spinal fracture [Unknown]
  - Mouth ulceration [Unknown]
  - Hypertension [Recovered/Resolved]
  - Palpitations [Unknown]
  - Arthropathy [Unknown]
  - Type 1 diabetes mellitus [Not Recovered/Not Resolved]
  - Influenza [Unknown]

NARRATIVE: CASE EVENT DATE: 2006
